FAERS Safety Report 25381075 (Version 6)
Quarter: 2025Q3

REPORT INFORMATION
  Report Type: Spontaneous
  Country: US (occurrence: US)
  Receive Date: 20250530
  Receipt Date: 20250829
  Transmission Date: 20251021
  Serious: No
  Sender: PFIZER
  Company Number: US-PFIZER INC-202500102158

PATIENT
  Age: 70 Year
  Sex: Female
  Weight: 74.39 kg

DRUGS (4)
  1. BRAFTOVI [Suspect]
     Active Substance: ENCORAFENIB
     Indication: Chemotherapy
     Dosage: 300 MG, 1X/DAY (4 CAPSULES OF 75 MG)
     Route: 048
     Dates: start: 20250528
  2. BRAFTOVI [Suspect]
     Active Substance: ENCORAFENIB
     Dosage: 225 MG, DAILY
     Route: 048
  3. DOXYCYCLINE [Concomitant]
     Active Substance: DOXYCYCLINE
  4. ERBITUX [Concomitant]
     Active Substance: CETUXIMAB

REACTIONS (4)
  - Discomfort [Unknown]
  - Fatigue [Unknown]
  - Nausea [Unknown]
  - Vomiting [Unknown]

NARRATIVE: CASE EVENT DATE: 20250528
